FAERS Safety Report 6697760-6 (Version None)
Quarter: 2010Q2

REPORT INFORMATION
  Report Type: 
  Country: None (occurrence: None)
  Receive Date: 20100426
  Receipt Date: 20080811
  Transmission Date: 20101027
  Serious: Yes (Death, Hospitalization)
  Sender: FDA-Public Use
  Company Number: US-GENENTECH-266071

PATIENT
  Sex: Female
  Weight: 72.6 kg

DRUGS (1)
  1. RANIBIZUMAB [Suspect]
     Indication: MACULAR DEGENERATION
     Dosage: 0.05 ML, 1/MONTH
     Route: 042
     Dates: start: 20070823, end: 20070823

REACTIONS (2)
  - DEATH [None]
  - HIP FRACTURE [None]
